FAERS Safety Report 9321742 (Version 2)
Quarter: 2013Q2

REPORT INFORMATION
  Report Type: Report from Study
  Country: AR (occurrence: AR)
  Receive Date: 20130531
  Receipt Date: 20130619
  Transmission Date: 20140414
  Serious: Yes (Other)
  Sender: FDA-Public Use
  Company Number: PHHY2013AR054913

PATIENT
  Sex: Female

DRUGS (4)
  1. ONBREZ [Suspect]
     Indication: ASTHMA
     Dosage: 150 UG, QD
  2. ONBREZ [Suspect]
     Indication: COUGH
  3. ONBREZ [Suspect]
     Indication: OFF LABEL USE
  4. SPIRIVA [Concomitant]
     Indication: ASTHMA

REACTIONS (4)
  - Urinary tract infection [Recovered/Resolved]
  - Bronchospasm [Recovered/Resolved]
  - Decreased immune responsiveness [Recovering/Resolving]
  - Fatigue [Recovering/Resolving]
